FAERS Safety Report 5109420-3 (Version None)
Quarter: 2006Q3

REPORT INFORMATION
  Report Type: 
  Country: None (occurrence: None)
  Receive Date: 20060918
  Receipt Date: 20060828
  Transmission Date: 20061208
  Serious: Yes (Hospitalization, Other)
  Sender: FDA-Public Use
  Company Number: 2006SP000501

PATIENT
  Age: 56 Year
  Sex: Female

DRUGS (1)
  1. TEMODAR [Suspect]
     Indication: GLIOBLASTOMA MULTIFORME
     Dosage: SEE IMAGE

REACTIONS (5)
  - BLISTER INFECTED [None]
  - BLOOD BLISTER [None]
  - BLOOD DISORDER [None]
  - FULL BLOOD COUNT DECREASED [None]
  - INCORRECT DOSE ADMINISTERED [None]
